FAERS Safety Report 9586609 (Version 1)
Quarter: 2013Q4

REPORT INFORMATION
  Report Type: Spontaneous
  Country: US (occurrence: US)
  Receive Date: 20131003
  Receipt Date: 20131003
  Transmission Date: 20140711
  Serious: Yes (Hospitalization)
  Sender: FDA-Public Use
  Company Number: US-009507513-1310USA000123

PATIENT
  Age: 53 Year
  Sex: Male

DRUGS (5)
  1. REBETOL [Suspect]
     Indication: CHRONIC HEPATITIS C
     Dosage: 800MG DAILY, DIVIDED DOSES
     Route: 048
     Dates: start: 20130517
  2. REBETOL [Suspect]
     Dosage: 1000MG DAILY, DIVIDED DOSES 600/400
     Route: 048
     Dates: start: 20130614
  3. PEGASYS [Suspect]
     Indication: CHRONIC HEPATITIS C
     Dosage: 180 MICROGRAMS WEEKLY
     Route: 058
     Dates: start: 20130517
  4. VICTRELIS [Suspect]
     Indication: CHRONIC HEPATITIS C
     Dosage: UNK
     Route: 048
     Dates: start: 20130614
  5. DEPAKOTE [Concomitant]
     Dosage: UNK

REACTIONS (2)
  - Infection [Unknown]
  - Skin ulcer [Recovered/Resolved]
